FAERS Safety Report 7291368-X (Version None)
Quarter: 2011Q1

REPORT INFORMATION
  Report Type: 
  Country: None (occurrence: None)
  Receive Date: 20110214
  Receipt Date: 20101221
  Transmission Date: 20110831
  Serious: Yes (Death)
  Sender: FDA-Public Use
  Company Number: B0687396A

PATIENT
  Age: 20 Year
  Sex: Female
  Weight: 44 kg

DRUGS (3)
  1. FORTUM [Suspect]
     Indication: POSTOPERATIVE CARE
     Dosage: 1G PER DAY
     Route: 042
     Dates: start: 20101127, end: 20101127
  2. SODIUM CHLORIDE [Concomitant]
  3. GLUCOSE [Concomitant]

REACTIONS (7)
  - ANAPHYLACTIC REACTION [None]
  - PULMONARY OEDEMA [None]
  - CONJUNCTIVAL OEDEMA [None]
  - HYPOTENSION [None]
  - PRODUCT QUALITY ISSUE [None]
  - EYELID OEDEMA [None]
  - DYSPNOEA [None]
